FAERS Safety Report 5121735-1 (Version None)
Quarter: 2006Q4

REPORT INFORMATION
  Report Type: 
  Country: None (occurrence: None)
  Receive Date: 20061006
  Receipt Date: 20060628
  Transmission Date: 20070319
  Serious: Yes (Death)
  Sender: FDA-Public Use
  Company Number: US-ROCHE-453675

PATIENT
  Age: 49 Year
  Sex: Male

DRUGS (5)
  1. PEGASYS [Suspect]
     Dosage: ROUTE REPORTED AS INJECTABLE. STRENGTH: 180 MCG/ 0.5 ML.
     Route: 050
     Dates: start: 20060525
  2. COPEGUS [Suspect]
     Route: 048
     Dates: start: 20060525
  3. LUNESTA [Concomitant]
     Indication: INSOMNIA
  4. ZOLOFT [Concomitant]
     Indication: DEPRESSION
     Dates: start: 20050615
  5. 1 CONCOMITANT DRUG [Concomitant]
     Indication: PSORIASIS
     Dosage: DRUG REPORTED AS: ALACON CREAM.

REACTIONS (10)
  - ANXIETY [None]
  - ASTHENIA [None]
  - COMPLETED SUICIDE [None]
  - CONFUSIONAL STATE [None]
  - FATIGUE [None]
  - GUN SHOT WOUND [None]
  - HOMICIDAL IDEATION [None]
  - INJECTION SITE BRUISING [None]
  - INSOMNIA [None]
  - SUICIDAL IDEATION [None]
